FAERS Safety Report 22219311 (Version 1)
Quarter: 2023Q2

REPORT INFORMATION
  Report Type: Spontaneous
  Country: US (occurrence: US)
  Receive Date: 20230417
  Receipt Date: 20230417
  Transmission Date: 20230721
  Serious: No
  Sender: FDA-Public Use
  Company Number: US-BAYER-2023A050498

PATIENT
  Age: 16 Year
  Sex: Female

DRUGS (1)
  1. LEVONORGESTREL [Suspect]
     Active Substance: LEVONORGESTREL
     Indication: Heavy menstrual bleeding
     Route: 015

REACTIONS (4)
  - Vaginal haemorrhage [None]
  - Off label use [None]
  - Abdominal pain lower [None]
  - Vaginal haemorrhage [None]
